FAERS Safety Report 4531538-4 (Version None)
Quarter: 2004Q4

REPORT INFORMATION
  Report Type: 
  Country: None (occurrence: None)
  Receive Date: 20041220
  Receipt Date: 20041208
  Transmission Date: 20050328
  Serious: Yes (Hospitalization)
  Sender: FDA-Public Use
  Company Number: CA-BRISTOL-MYERS SQUIBB COMPANY-12791141

PATIENT
  Age: 52 Year
  Sex: Female

DRUGS (1)
  1. CARDIOLITE [Suspect]
     Indication: SCAN PARATHYROID
     Route: 042
     Dates: start: 20041207, end: 20041207

REACTIONS (2)
  - HYPOAESTHESIA [None]
  - PARAESTHESIA [None]
